FAERS Safety Report 13746091 (Version 1)
Quarter: 2017Q3

REPORT INFORMATION
  Report Type: Spontaneous
  Country: US (occurrence: US)
  Receive Date: 20170712
  Receipt Date: 20170712
  Transmission Date: 20171127
  Serious: Yes (Hospitalization)
  Sender: FDA-Public Use
  Company Number: None

PATIENT
  Age: 70 Year
  Sex: Female
  Weight: 81 kg

DRUGS (1)
  1. MULTIHANCE [Suspect]
     Active Substance: GADOBENATE DIMEGLUMINE
     Indication: SCAN WITH CONTRAST
     Dosage: ?          OTHER DOSE:ML;?
     Route: 042
     Dates: start: 20170711, end: 20170711

REACTIONS (6)
  - Contrast media reaction [None]
  - Nausea [None]
  - Headache [None]
  - Erythema [None]
  - Malaise [None]
  - Dyspnoea [None]

NARRATIVE: CASE EVENT DATE: 20170711
